FAERS Safety Report 4503075-4 (Version None)
Quarter: 2004Q4

REPORT INFORMATION
  Report Type: 
  Country: None (occurrence: None)
  Receive Date: 20041116
  Receipt Date: 20041116
  Transmission Date: 20050328
  Serious: Yes (Hospitalization)
  Sender: FDA-Public Use
  Company Number: None

PATIENT
  Age: 41 Year
  Sex: Male

DRUGS (2)
  1. TOBRAMYCIN [Suspect]
     Indication: INFECTION
     Dosage: 220 MG IV Q 8 HRS
     Route: 042
  2. TENOFAVIR (VIREAD) [Suspect]
     Indication: HIV INFECTION
     Dosage: 300 MG PO DLY
     Route: 048

REACTIONS (2)
  - HAEMODIALYSIS [None]
  - RENAL FAILURE ACUTE [None]
